FAERS Safety Report 13444403 (Version 2)
Quarter: 2017Q2

REPORT INFORMATION
  Report Type: Spontaneous
  Country: AR (occurrence: AR)
  Receive Date: 20170414
  Receipt Date: 20170523
  Transmission Date: 20170830
  Serious: Yes (Death)
  Sender: FDA-Public Use
  Company Number: PHHY2017AR019641

PATIENT
  Age: 73 Year
  Sex: Male

DRUGS (1)
  1. COSENTYX [Suspect]
     Active Substance: SECUKINUMAB
     Indication: ANKYLOSING SPONDYLITIS
     Route: 065

REACTIONS (6)
  - Crohn^s disease [Fatal]
  - Abdominal pain [Unknown]
  - Gastrointestinal disorder [Fatal]
  - Intestinal perforation [Fatal]
  - Diarrhoea [Fatal]
  - Hypoalbuminaemia [Unknown]
